FAERS Safety Report 6595097-7 (Version None)
Quarter: 2010Q1

REPORT INFORMATION
  Report Type: 
  Country: None (occurrence: None)
  Receive Date: 20100222
  Receipt Date: 20100210
  Transmission Date: 20100710
  Serious: Yes (Hospitalization, Other)
  Sender: FDA-Public Use
  Company Number: FR-ELI_LILLY_AND_COMPANY-FR201002002571

PATIENT
  Sex: Female

DRUGS (12)
  1. PROZAC [Suspect]
     Dosage: 20 MG, DAILY (1/D)
     Route: 048
     Dates: end: 20080914
  2. ANAFRANIL [Concomitant]
     Dosage: 75 MG, DAILY (1/D)
     Route: 048
     Dates: end: 20080914
  3. ATARAX [Concomitant]
     Dosage: 100 MG, DAILY (1/D)
     Route: 048
     Dates: end: 20080914
  4. COLCHIMAX [Concomitant]
     Dosage: 1 D/F, DAILY (1/D)
     Route: 048
     Dates: end: 20080914
  5. LYSANXIA [Concomitant]
     Dosage: 40 MG, 3/D
     Route: 048
     Dates: end: 20080901
  6. LYSANXIA [Concomitant]
     Dosage: 0.5 D/F, DAILY (1/D)
     Route: 048
     Dates: start: 20080914
  7. DEPAMIDE [Concomitant]
     Dosage: 300 MG, 3/D
     Route: 048
  8. LEVOTHYROX [Concomitant]
     Dosage: 175 UG, DAILY (1/D)
     Route: 048
  9. NOCTAMIDE [Concomitant]
     Dosage: 0.5 D/F, DAILY (1/D)
     Route: 048
  10. SPAGULAX [Concomitant]
     Dosage: 1 D/F, 4/D
     Route: 048
  11. TRANSIPEG [Concomitant]
     Dosage: 1 D/F, 2/D
     Route: 048
  12. MOVICOL /01053601/ [Concomitant]
     Dosage: 1 D/F, DAILY (1/D)
     Route: 048

REACTIONS (3)
  - CONFUSIONAL STATE [None]
  - FALL [None]
  - HOSPITALISATION [None]
